FAERS Safety Report 11873173 (Version 1)
Quarter: 2015Q4

REPORT INFORMATION
  Report Type: Other
  Country: US (occurrence: US)
  Receive Date: 20151228
  Receipt Date: 20151228
  Transmission Date: 20160305
  Serious: Yes (Hospitalization)
  Sender: FDA-Public Use
  Company Number: US-BRECKENRIDGE PHARMACEUTICAL, INC.-1045945

PATIENT
  Age: 38 Year
  Sex: Male

DRUGS (3)
  1. LEVETIRACETAM. [Suspect]
     Active Substance: LEVETIRACETAM
     Indication: CLONIC CONVULSION
     Route: 048
  2. TOPIRAMATE. [Interacting]
     Active Substance: TOPIRAMATE
  3. OXCARBAZEPINE. [Interacting]
     Active Substance: OXCARBAZEPINE

REACTIONS (3)
  - Hypothermia [Recovering/Resolving]
  - Bradycardia [Recovered/Resolved]
  - Autonomic nervous system imbalance [Recovered/Resolved]
